FAERS Safety Report 25510516 (Version 1)
Quarter: 2025Q3

REPORT INFORMATION
  Report Type: Spontaneous
  Country: US (occurrence: US)
  Receive Date: 20250703
  Receipt Date: 20250703
  Transmission Date: 20251021
  Serious: No
  Sender: RADIUS PHARM
  Company Number: US-RADIUS HEALTH INC.-2024US003464

PATIENT
  Sex: Male

DRUGS (1)
  1. TYMLOS [Suspect]
     Active Substance: ABALOPARATIDE
     Indication: Osteoporosis
     Route: 058
     Dates: start: 202308

REACTIONS (9)
  - Injection site bruising [Unknown]
  - Hyperhidrosis [Unknown]
  - Feeling cold [Unknown]
  - Rib fracture [Unknown]
  - Bone disorder [Unknown]
  - Cold sweat [Unknown]
  - Body temperature fluctuation [Unknown]
  - Weight decreased [Unknown]
  - Contusion [Unknown]
